FAERS Safety Report 17724249 (Version 2)
Quarter: 2020Q2

REPORT INFORMATION
  Report Type: Spontaneous
  Country: US (occurrence: US)
  Receive Date: 20200429
  Receipt Date: 20200528
  Transmission Date: 20200714
  Serious: No
  Sender: FDA-Public Use
  Company Number: US-VERTEX PHARMACEUTICALS-2020-009728

PATIENT
  Age: 1 Year
  Sex: Male
  Weight: 4.31 kg

DRUGS (4)
  1. POLYVISOL [ASCORBIC ACID;CYANOCOBALAMIN;ERGOCALCIFEROL;NICOTINAMIDE;PY [Concomitant]
     Dosage: 750-35/ML DROPS
  2. KALYDECO [Suspect]
     Active Substance: IVACAFTOR
     Indication: CYSTIC FIBROSIS
     Dosage: 25 MG, BID (MIX 1 PACKET INTO 1 TEASPOON FULL, 5ML OF SOFT FOOD OR LIQUID AND TAKE EVERY 12 HOURS)
     Route: 048
     Dates: start: 20191221
  3. PULMOZYME [Concomitant]
     Active Substance: DORNASE ALFA
  4. BUDESONIDE. [Concomitant]
     Active Substance: BUDESONIDE
     Dosage: 0.25MG/2ML AMPUL-NEB

REACTIONS (1)
  - COVID-19 [Unknown]

NARRATIVE: CASE EVENT DATE: 202004
